FAERS Safety Report 5444804-5 (Version None)
Quarter: 2007Q3

REPORT INFORMATION
  Report Type: 
  Country: None (occurrence: None)
  Receive Date: 20070906
  Receipt Date: 20070323
  Transmission Date: 20080115
  Serious: No
  Sender: FDA-Public Use
  Company Number: A0644362A

PATIENT
  Sex: Female

DRUGS (1)
  1. REQUIP [Suspect]
     Indication: RESTLESS LEGS SYNDROME
     Dosage: 1MG PER DAY
     Route: 048
     Dates: start: 20070319

REACTIONS (6)
  - EAR DISORDER [None]
  - INITIAL INSOMNIA [None]
  - MUSCLE TIGHTNESS [None]
  - SINUS HEADACHE [None]
  - VISION BLURRED [None]
  - WEIGHT INCREASED [None]
